FAERS Safety Report 4717778-X (Version None)
Quarter: 2005Q3

REPORT INFORMATION
  Report Type: 
  Country: None (occurrence: None)
  Receive Date: 20050715
  Receipt Date: 20050114
  Transmission Date: 20060218
  Serious: Yes (Life-Threatening, Hospitalization)
  Sender: FDA-Public Use
  Company Number: 2005-00155

PATIENT
  Age: 84 Year
  Sex: Female
  Weight: 53.1 kg

DRUGS (7)
  1. INTEGRILIN [Suspect]
     Dosage: SEE IMAGE
     Route: 040
     Dates: start: 20041212, end: 20041215
  2. INTEGRILIN [Suspect]
     Dosage: SEE IMAGE
     Route: 040
     Dates: start: 20041215, end: 20041215
  3. . [Concomitant]
  4. ENOXAPARIN SODIUM [Suspect]
     Dosage: 60.00 MG, X3, SUBCUTANEOUS
     Route: 058
     Dates: start: 20041214, end: 20041215
  5. ASPIRIN [Concomitant]
  6. CLOPIDOGREL BISULFATE [Concomitant]
  7. METOPROLOL TARTRATE [Concomitant]

REACTIONS (1)
  - TRANSIENT ISCHAEMIC ATTACK [None]
